FAERS Safety Report 4317068-3 (Version None)
Quarter: 2004Q1

REPORT INFORMATION
  Report Type: 
  Country: None (occurrence: None)
  Receive Date: 20040312
  Receipt Date: 20040301
  Transmission Date: 20041129
  Serious: Yes (Hospitalization)
  Sender: FDA-Public Use
  Company Number: 2003190321FR

PATIENT
  Age: 24 Year
  Sex: Male
  Weight: 70 kg

DRUGS (3)
  1. SULFASALAZINE [Suspect]
     Indication: ANKYLOSING SPONDYLITIS
     Dosage: 3 G/DAY, ORAL
     Route: 048
     Dates: start: 20000101, end: 20030101
  2. CEBUTID [Concomitant]
  3. TRAMADOL HCL [Concomitant]

REACTIONS (1)
  - RENAL COLIC [None]
